FAERS Safety Report 6959078-3 (Version None)
Quarter: 2010Q3

REPORT INFORMATION
  Report Type: 
  Country: None (occurrence: None)
  Receive Date: 20100831
  Receipt Date: 20100820
  Transmission Date: 20110219
  Serious: Yes (Other)
  Sender: FDA-Public Use
  Company Number: US-WYE-H17165310

PATIENT
  Sex: Female
  Weight: 77.18 kg

DRUGS (4)
  1. EFFEXOR XR [Suspect]
     Indication: DEPRESSION
     Route: 048
  2. EFFEXOR XR [Suspect]
     Indication: ANXIETY
  3. TOPAMAX [Concomitant]
     Dosage: UNKNOWN
  4. LEVOTHYROXINE [Concomitant]
     Dosage: UNKNOWN

REACTIONS (1)
  - HIP ARTHROPLASTY [None]
